FAERS Safety Report 17375452 (Version 1)
Quarter: 2020Q1

REPORT INFORMATION
  Report Type: Spontaneous
  Country: US (occurrence: US)
  Receive Date: 20200206
  Receipt Date: 20200206
  Transmission Date: 20200409
  Serious: No
  Sender: FDA-Public Use
  Company Number: US-GLENMARK PHARMACEUTICALS-2019GMK044514

PATIENT

DRUGS (1)
  1. CLOBETASOL PROPIONATE TOPICAL SOLUTION USP, 0.05% [Suspect]
     Active Substance: CLOBETASOL PROPIONATE
     Indication: PRURITUS
     Dosage: UNK (USED ONLY ONCE)
     Route: 061
     Dates: start: 20191108, end: 20191108

REACTIONS (3)
  - No adverse event [Unknown]
  - Product container issue [Unknown]
  - Accidental exposure to product [Unknown]
